FAERS Safety Report 7776819-6 (Version None)
Quarter: 2011Q3

REPORT INFORMATION
  Report Type: 
  Country: None (occurrence: None)
  Receive Date: 20110926
  Receipt Date: 20110913
  Transmission Date: 20111222
  Serious: No
  Sender: FDA-Public Use
  Company Number: US-MUTUAL PHARMACEUTICAL COMPANY, INC.-CLCY20110129

PATIENT
  Sex: Female

DRUGS (3)
  1. COLCRYS [Suspect]
     Indication: GOUT
     Route: 065
  2. ALLOPURINOL [Suspect]
     Indication: GOUT
     Route: 065
  3. INDOMETHACIN [Suspect]
     Indication: GOUT
     Route: 065

REACTIONS (1)
  - RENAL FAILURE ACUTE [None]
